FAERS Safety Report 9803165 (Version 1)
Quarter: 2014Q1

REPORT INFORMATION
  Report Type: Spontaneous
  Country: US (occurrence: US)
  Receive Date: 20140108
  Receipt Date: 20140108
  Transmission Date: 20141002
  Serious: No
  Sender: FDA-Public Use
  Company Number: US-PFIZER INC-2014002537

PATIENT
  Sex: Male

DRUGS (7)
  1. LYRICA [Suspect]
     Indication: CONVULSION
     Dosage: 125 MG, SINGLE
     Route: 048
  2. LYRICA [Suspect]
     Indication: NEURALGIA
  3. LYRICA [Suspect]
     Indication: NECK PAIN
  4. LYRICA [Suspect]
     Indication: BACK PAIN
  5. LYRICA [Suspect]
     Indication: PAIN IN EXTREMITY
  6. CLONAZEPAM [Suspect]
     Dosage: 3 MG, UNK
  7. METHADONE [Suspect]
     Dosage: 60 MG, DAILY

REACTIONS (9)
  - Dry mouth [Unknown]
  - Dizziness [Unknown]
  - Activities of daily living impaired [Unknown]
  - Eye disorder [Unknown]
  - Fatigue [Unknown]
  - Local swelling [Unknown]
  - Vision blurred [Unknown]
  - Disturbance in attention [Unknown]
  - Somnolence [Unknown]
